FAERS Safety Report 13693915 (Version 1)
Quarter: 2017Q2

REPORT INFORMATION
  Report Type: Spontaneous
  Country: US (occurrence: US)
  Receive Date: 20170626
  Receipt Date: 20170626
  Transmission Date: 20170830
  Serious: Yes (Hospitalization)
  Sender: FDA-Public Use
  Company Number: None

PATIENT
  Age: 69 Year
  Sex: Male
  Weight: 88.2 kg

DRUGS (9)
  1. RADIUM-223 [Suspect]
     Active Substance: RADIUM RA-223 DICHLORIDE
     Indication: PROSTATE CANCER METASTATIC
     Dosage: ?          OTHER FREQUENCY:ONCE A MONTH;?
     Route: 042
     Dates: start: 20170608, end: 20170608
  2. TAMSULOSIN [Concomitant]
     Active Substance: TAMSULOSIN
  3. TRAMADOL. [Concomitant]
     Active Substance: TRAMADOL
  4. FINASTERIDE. [Concomitant]
     Active Substance: FINASTERIDE
  5. POLYETHYLENE GLYCOL [Concomitant]
     Active Substance: POLYETHYLENE GLYCOLS
  6. ZYTIGA [Suspect]
     Active Substance: ABIRATERONE ACETATE
     Indication: PROSTATE CANCER METASTATIC
     Dosage: ?          OTHER DOSE:MG;?
     Route: 048
     Dates: start: 20170509, end: 20170626
  7. OXYCODONE [Concomitant]
     Active Substance: OXYCODONE
  8. OMEPRAZOLE. [Concomitant]
     Active Substance: OMEPRAZOLE
  9. ACETAMINOPHEN. [Concomitant]
     Active Substance: ACETAMINOPHEN

REACTIONS (3)
  - Metastases to spine [None]
  - Thecal sac compression [None]
  - Back pain [None]

NARRATIVE: CASE EVENT DATE: 20170624
